FAERS Safety Report 5178906-8 (Version None)
Quarter: 2006Q4

REPORT INFORMATION
  Report Type: 
  Country: None (occurrence: None)
  Receive Date: 20061208
  Receipt Date: 20061130
  Transmission Date: 20070319
  Serious: Yes (Other)
  Sender: FDA-Public Use
  Company Number: SPV1-2006-01967

PATIENT
  Age: 9 Year
  Sex: Female

DRUGS (3)
  1. DAYTRANA [Suspect]
     Indication: ATTENTION DEFICIT/HYPERACTIVITY DISORDER
     Dosage: 15 MG, TRANSDERMAL, SEE IMAGE
     Route: 062
     Dates: start: 20061008, end: 20061116
  2. DAYTRANA [Suspect]
     Indication: ATTENTION DEFICIT/HYPERACTIVITY DISORDER
     Dosage: 15 MG, TRANSDERMAL, SEE IMAGE
     Route: 062
     Dates: start: 20061117, end: 20061130
  3. RITALIN [Concomitant]

REACTIONS (5)
  - APPLICATION SITE RASH [None]
  - DECREASED APPETITE [None]
  - DELUSION [None]
  - PARANOIA [None]
  - PRURITUS GENERALISED [None]
